FAERS Safety Report 6099857-0 (Version None)
Quarter: 2009Q1

REPORT INFORMATION
  Report Type: 
  Country: None (occurrence: None)
  Receive Date: 20090303
  Receipt Date: 20090226
  Transmission Date: 20090719
  Serious: Yes (Death)
  Sender: FDA-Public Use
  Company Number: PHEH2008US10290

PATIENT
  Sex: Female
  Weight: 58.503 kg

DRUGS (1)
  1. GLEEVEC [Suspect]

REACTIONS (5)
  - ALOPECIA [None]
  - EYE OEDEMA [None]
  - GASTROINTESTINAL STROMAL TUMOUR [None]
  - METASTASES TO LIVER [None]
  - METASTASES TO PERITONEUM [None]
